FAERS Safety Report 23861239 (Version 1)
Quarter: 2024Q2

REPORT INFORMATION
  Report Type: Spontaneous
  Country: FR (occurrence: FR)
  Receive Date: 20240516
  Receipt Date: 20240516
  Transmission Date: 20240716
  Serious: Yes (Death, Other)
  Sender: FDA-Public Use
  Company Number: FR-CELLTRION INC.-2024FR011062

PATIENT

DRUGS (4)
  1. RITUXIMAB [Suspect]
     Active Substance: RITUXIMAB
     Indication: Lymphoma
     Dosage: UNK
     Route: 058
     Dates: start: 20191113, end: 20211020
  2. COMIRNATY (TOZINAMERAN) [Suspect]
     Active Substance: TOZINAMERAN
     Indication: COVID-19 immunisation
     Dosage: 1 DF 3 TOTAL, D1+D2+R1
     Route: 030
     Dates: start: 20210326, end: 20210708
  3. COMIRNATY (TOZINAMERAN) [Suspect]
     Active Substance: TOZINAMERAN
     Dosage: 1 DF 3 TOTAL, D1+D2+R1
     Route: 030
     Dates: start: 20210326, end: 20210708
  4. COMIRNATY (TOZINAMERAN) [Suspect]
     Active Substance: TOZINAMERAN
     Dosage: 1 DF 3 TOTAL, D1+D2+R1
     Route: 030
     Dates: start: 20210326, end: 20210708

REACTIONS (3)
  - Vaccination failure [Fatal]
  - COVID-19 pneumonia [Fatal]
  - Intentional product use issue [Unknown]

NARRATIVE: CASE EVENT DATE: 20220207
